FAERS Safety Report 5423853-7 (Version None)
Quarter: 2007Q3

REPORT INFORMATION
  Report Type: 
  Country: None (occurrence: None)
  Receive Date: 20070823
  Receipt Date: 20070821
  Transmission Date: 20080115
  Serious: Yes (Other)
  Sender: FDA-Public Use
  Company Number: A0672537A

PATIENT
  Age: 27 Year
  Weight: 102.3 kg

DRUGS (1)
  1. ALLI [Suspect]
     Indication: DRUG USE FOR UNKNOWN INDICATION
     Route: 048
     Dates: start: 20070615

REACTIONS (5)
  - ABDOMINAL DISTENSION [None]
  - FAECAL INCONTINENCE [None]
  - FLATULENCE [None]
  - GASTROINTESTINAL DISORDER [None]
  - STEATORRHOEA [None]
